FAERS Safety Report 13026805 (Version 2)
Quarter: 2017Q4

REPORT INFORMATION
  Report Type: Spontaneous
  Country: JP (occurrence: JP)
  Receive Date: 20161214
  Receipt Date: 20171128
  Transmission Date: 20180320
  Serious: Yes (Other)
  Sender: FDA-Public Use
  Company Number: JP-PROSTRAKAN-2014-JP-0034

PATIENT

DRUGS (1)
  1. TOREMIFENE [Suspect]
     Active Substance: TOREMIFENE
     Indication: BREAST CANCER
     Dosage: 40 MG, QD
     Route: 048
     Dates: start: 20080908, end: 20130214

REACTIONS (4)
  - Endometrial hypertrophy [Recovering/Resolving]
  - Endometrial hyperplasia [Recovering/Resolving]
  - Rectosigmoid cancer [Unknown]
  - Adenomyosis [Recovered/Resolved]

NARRATIVE: CASE EVENT DATE: 2013
